FAERS Safety Report 24404519 (Version 1)
Quarter: 2024Q4

REPORT INFORMATION
  Report Type: Report from Study
  Country: US (occurrence: US)
  Receive Date: 20241007
  Receipt Date: 20241007
  Transmission Date: 20250114
  Serious: No
  Sender: ROCHE
  Company Number: US-ROCHE-3548819

PATIENT
  Age: 62 Year
  Sex: Female

DRUGS (1)
  1. OBINUTUZUMAB [Suspect]
     Active Substance: OBINUTUZUMAB
     Indication: Non-Hodgkin^s lymphoma
     Dosage: IN 250 ML 0.9 % NACL.?DAY 8 AND 15. INFUSE RATE 100 MG/HOUR (32ML/HR) FOR MIN, THEN MAY INCREASE RAT
     Route: 042

REACTIONS (1)
  - Drug hypersensitivity [Unknown]
